FAERS Safety Report 9056774 (Version 1)
Quarter: 2013Q1

REPORT INFORMATION
  Report Type: Spontaneous
  Country: US (occurrence: US)
  Receive Date: 20130201
  Receipt Date: 20130201
  Transmission Date: 20140127
  Serious: Yes (Hospitalization)
  Sender: FDA-Public Use
  Company Number: US-INCYTE CORPORATION-2013IN000191

PATIENT
  Age: 72 None
  Sex: Male
  Weight: 83.9 kg

DRUGS (1)
  1. JAKAFI [Suspect]
     Indication: LYMPHOMA
     Dosage: 20 MG, BID
     Route: 048
     Dates: start: 20120606

REACTIONS (1)
  - Hospitalisation [Unknown]
